FAERS Safety Report 7167152-4 (Version None)
Quarter: 2010Q4

REPORT INFORMATION
  Report Type: 
  Country: None (occurrence: None)
  Receive Date: 20101216
  Receipt Date: 20101207
  Transmission Date: 20110411
  Serious: Yes (Hospitalization)
  Sender: FDA-Public Use
  Company Number: GXKR2010US13827

PATIENT
  Age: 72 Year
  Sex: Female

DRUGS (2)
  1. ALLOPURINOL [Suspect]
     Route: 065
  2. COLCHICINE [Suspect]
     Route: 065

REACTIONS (4)
  - ERYTHEMA [None]
  - PEMPHIGOID [None]
  - PYREXIA [None]
  - RASH PRURITIC [None]
